FAERS Safety Report 11145713 (Version 2)
Quarter: 2015Q2

REPORT INFORMATION
  Report Type: Report from Study
  Country: AU (occurrence: AU)
  Receive Date: 20150528
  Receipt Date: 20150603
  Transmission Date: 20150821
  Serious: Yes (Death, Life-Threatening, Hospitalization, Other)
  Sender: FDA-Public Use
  Company Number: AU-TAKEDA-2015MPI002807

PATIENT
  Age: 67 Year
  Sex: Male
  Weight: 106.9 kg

DRUGS (3)
  1. DARATUMUMAB [Suspect]
     Active Substance: DARATUMUMAB
     Indication: PLASMA CELL MYELOMA
     Dosage: 16 MG, UNK
     Route: 042
     Dates: start: 20150413, end: 20150420
  2. VELCADE [Suspect]
     Active Substance: BORTEZOMIB
     Indication: PLASMA CELL MYELOMA
     Dosage: 2.73 MG, UNK
     Route: 058
     Dates: start: 20150413, end: 20150424
  3. DEXAMETHASONE. [Suspect]
     Active Substance: DEXAMETHASONE
     Indication: PLASMA CELL MYELOMA
     Dosage: 20 MG, UNK
     Route: 048
     Dates: start: 20150413, end: 20150426

REACTIONS (2)
  - Acute kidney injury [Not Recovered/Not Resolved]
  - Duodenal ulcer [Fatal]

NARRATIVE: CASE EVENT DATE: 20150420
